FAERS Safety Report 10254546 (Version 26)
Quarter: 2015Q4

REPORT INFORMATION
  Report Type: Report from Study
  Country: US (occurrence: US)
  Receive Date: 20140624
  Receipt Date: 20151116
  Transmission Date: 20160304
  Serious: Yes (Hospitalization, Other)
  Sender: FDA-Public Use
  Company Number: US-ALEXION-A201402346

PATIENT
  Age: 33 Year
  Sex: Female

DRUGS (8)
  1. SOLIRIS [Suspect]
     Active Substance: ECULIZUMAB
     Dosage: 1200 MG, QW
     Route: 042
  2. INSULIN [Suspect]
     Active Substance: INSULIN NOS
     Indication: TYPE 1 DIABETES MELLITUS
     Dosage: UNK
     Route: 065
  3. SOLIRIS [Suspect]
     Active Substance: ECULIZUMAB
     Dosage: 1200 MG, UNK
     Route: 042
  4. SOLIRIS [Suspect]
     Active Substance: ECULIZUMAB
     Dosage: 900 MG, QW
     Route: 042
     Dates: start: 20140326
  5. SOLIRIS [Suspect]
     Active Substance: ECULIZUMAB
     Dosage: 1500 MG, QW
     Route: 042
  6. SOLIRIS [Suspect]
     Active Substance: ECULIZUMAB
     Dosage: 1500 MG, Q2W
     Route: 042
     Dates: start: 20140905
  7. SOLIRIS [Suspect]
     Active Substance: ECULIZUMAB
     Indication: HAEMOLYTIC URAEMIC SYNDROME
     Dosage: 1200 MG, Q2W
     Route: 042
     Dates: start: 20140326
  8. SOLIRIS [Suspect]
     Active Substance: ECULIZUMAB
     Dosage: 1500 MG, QW
     Route: 042

REACTIONS (49)
  - Hypertension [Unknown]
  - Pyrexia [Unknown]
  - Pyrexia [Unknown]
  - Bacteraemia [Recovered/Resolved]
  - Cerebral infarction [Not Recovered/Not Resolved]
  - Device malfunction [Unknown]
  - Unevaluable event [Recovered/Resolved]
  - Nausea [Unknown]
  - Visual impairment [Not Recovered/Not Resolved]
  - Halo vision [Not Recovered/Not Resolved]
  - Drug ineffective [Recovered/Resolved]
  - Renal failure [Not Recovered/Not Resolved]
  - Acute kidney injury [Recovering/Resolving]
  - Cardiac failure congestive [Recovering/Resolving]
  - Pain [Unknown]
  - Sepsis [Unknown]
  - Headache [Not Recovered/Not Resolved]
  - Confusional state [Unknown]
  - General physical condition abnormal [Unknown]
  - Platelet count decreased [Unknown]
  - Pyrexia [Unknown]
  - Hypoxia [Not Recovered/Not Resolved]
  - Blood glucose increased [Recovered/Resolved]
  - Sepsis [Unknown]
  - Pancreatitis [Recovering/Resolving]
  - Pseudomonas infection [Not Recovered/Not Resolved]
  - Device related infection [Not Recovered/Not Resolved]
  - Hypertrophic cardiomyopathy [Unknown]
  - Platelet count decreased [Recovered/Resolved]
  - Blood glucose increased [Unknown]
  - Seizure [Unknown]
  - Blood pressure increased [Unknown]
  - Blood creatinine increased [Unknown]
  - Fatigue [Unknown]
  - Discomfort [Unknown]
  - Incorrect dose administered [Not Recovered/Not Resolved]
  - Unevaluable event [Unknown]
  - Hypertension [Recovered/Resolved]
  - Renal impairment [Recovering/Resolving]
  - Amnesia [Not Recovered/Not Resolved]
  - Device related infection [Not Recovered/Not Resolved]
  - Abdominal pain [Unknown]
  - Vomiting [Unknown]
  - Fungal infection [Unknown]
  - Condition aggravated [Recovered/Resolved]
  - Pancreatitis [Unknown]
  - Amnesia [Unknown]
  - Malaise [Recovering/Resolving]
  - Upper respiratory tract infection [Unknown]

NARRATIVE: CASE EVENT DATE: 20140604
